FAERS Safety Report 6068556-3 (Version None)
Quarter: 2009Q1

REPORT INFORMATION
  Report Type: 
  Country: None (occurrence: None)
  Receive Date: 20090206
  Receipt Date: 20090130
  Transmission Date: 20090719
  Serious: Yes (Hospitalization, Other)
  Sender: FDA-Public Use
  Company Number: US-BIOGENIDEC-2005BI006150

PATIENT
  Sex: Female

DRUGS (3)
  1. TYSABRI [Suspect]
     Indication: MULTIPLE SCLEROSIS
     Route: 042
     Dates: start: 20050205, end: 20050205
  2. TYSABRI [Suspect]
     Route: 042
     Dates: start: 20070104
  3. MEDICATION [Concomitant]
     Indication: THROMBOSIS

REACTIONS (10)
  - COLECTOMY [None]
  - COLECTOMY TOTAL [None]
  - GASTROINTESTINAL DISORDER [None]
  - HEADACHE [None]
  - IRRITABILITY [None]
  - NAUSEA [None]
  - PAIN [None]
  - SMALL INTESTINAL OBSTRUCTION [None]
  - SURGERY [None]
  - VASCULAR OPERATION [None]
